FAERS Safety Report 7119099-7 (Version None)
Quarter: 2010Q4

REPORT INFORMATION
  Report Type: 
  Country: None (occurrence: None)
  Receive Date: 20101123
  Receipt Date: 20101105
  Transmission Date: 20110411
  Serious: Yes (Hospitalization)
  Sender: FDA-Public Use
  Company Number: KR-ROCHE-739407

PATIENT
  Age: 49 Year
  Sex: Female

DRUGS (2)
  1. ANAPROX [Suspect]
     Indication: ANALGESIC THERAPY
     Dosage: FREQUENCY: ONCE
     Route: 048
     Dates: start: 20101101
  2. CEFACLOR [Concomitant]
     Dosage: FREQUENCY: ONCE
     Dates: start: 20101101

REACTIONS (2)
  - CHEST PAIN [None]
  - PARALYSIS [None]
